FAERS Safety Report 7996619-1 (Version None)
Quarter: 2011Q4

REPORT INFORMATION
  Report Type: 
  Country: None (occurrence: None)
  Receive Date: 20111221
  Receipt Date: 20111215
  Transmission Date: 20120403
  Serious: Yes (Other)
  Sender: FDA-Public Use
  Company Number: AR-BRISTOL-MYERS SQUIBB COMPANY-15777204

PATIENT
  Age: 63 Year
  Sex: Male

DRUGS (3)
  1. BLINDED: SAXAGLIPTIN [Suspect]
     Indication: TYPE 2 DIABETES MELLITUS
     Dosage: 1DF:2.5MG/5MG
     Dates: start: 20101026
  2. BLINDED: PLACEBO [Suspect]
     Indication: TYPE 2 DIABETES MELLITUS
     Dates: start: 20101026
  3. ASPIRIN [Concomitant]

REACTIONS (2)
  - HEPATIC ENZYME INCREASED [None]
  - PANCREATITIS [None]
